FAERS Safety Report 20041842 (Version 1)
Quarter: 2021Q4

REPORT INFORMATION
  Report Type: Spontaneous
  Country: CN (occurrence: CN)
  Receive Date: 20211108
  Receipt Date: 20211108
  Transmission Date: 20220303
  Serious: Yes (Other)
  Sender: FDA-Public Use
  Company Number: CN-SA-SAC20211102000845

PATIENT
  Age: 44 Year
  Sex: Female
  Weight: 48 kg

DRUGS (6)
  1. FLUOROURACIL [Suspect]
     Active Substance: FLUOROURACIL
     Indication: Small intestine carcinoma
     Dosage: 0.568 G, QD
     Route: 041
     Dates: start: 20210603, end: 20210603
  2. FLUOROURACIL [Suspect]
     Active Substance: FLUOROURACIL
     Dosage: 3.4 G, QD
     Route: 041
     Dates: start: 20210603, end: 20210605
  3. OXALIPLATIN [Suspect]
     Active Substance: OXALIPLATIN
     Indication: Small intestine carcinoma
     Dosage: 120.7 MG, QD
     Route: 041
     Dates: end: 20210603
  4. SODIUM CHLORIDE [Concomitant]
     Active Substance: SODIUM CHLORIDE
     Route: 041
     Dates: start: 20210603, end: 20210603
  5. SODIUM CHLORIDE [Concomitant]
     Active Substance: SODIUM CHLORIDE
     Route: 041
     Dates: start: 20210603, end: 20210605
  6. DEXTROSE [Concomitant]
     Active Substance: DEXTROSE
     Indication: Small intestine carcinoma
     Route: 041
     Dates: start: 20210603, end: 20210603

REACTIONS (1)
  - Liver injury [Recovering/Resolving]

NARRATIVE: CASE EVENT DATE: 20210616
